FAERS Safety Report 13255653 (Version 2)
Quarter: 2017Q4

REPORT INFORMATION
  Report Type: Spontaneous
  Country: US (occurrence: US)
  Receive Date: 20170221
  Receipt Date: 20171016
  Transmission Date: 20180320
  Serious: Yes (Other)
  Sender: FDA-Public Use
  Company Number: US-JNJFOC-20170218084

PATIENT
  Age: 50 Year
  Sex: Male

DRUGS (3)
  1. BAYER ASPIRIN [Concomitant]
     Active Substance: ASPIRIN
     Indication: PRODUCT USED FOR UNKNOWN INDICATION
     Route: 048
  2. INVOKAMET [Suspect]
     Active Substance: CANAGLIFLOZIN\METFORMIN HYDROCHLORIDE
     Indication: TYPE 2 DIABETES MELLITUS
     Dosage: 150/1000
     Route: 048
     Dates: start: 20141217, end: 20141222
  3. LIPITOR [Concomitant]
     Active Substance: ATORVASTATIN CALCIUM
     Indication: BLOOD CHOLESTEROL
     Route: 065

REACTIONS (5)
  - Diabetic ketoacidosis [Unknown]
  - Syncope [Unknown]
  - Dizziness [Unknown]
  - Dyspnoea [Unknown]
  - Renal failure [Unknown]

NARRATIVE: CASE EVENT DATE: 201412
